FAERS Safety Report 16822431 (Version 1)
Quarter: 2019Q3

REPORT INFORMATION
  Report Type: Spontaneous
  Country: US (occurrence: US)
  Receive Date: 20190726
  Receipt Date: 20190726
  Transmission Date: 20191005
  Serious: Yes (Hospitalization)
  Sender: FDA-Public Use
  Company Number: None

PATIENT
  Sex: Female

DRUGS (10)
  1. MELOXICAM. [Concomitant]
     Active Substance: MELOXICAM
  2. MULTIVITAMIN [Concomitant]
     Active Substance: VITAMINS
  3. ACTEMRA [Suspect]
     Active Substance: TOCILIZUMAB
     Indication: RHEUMATOID ARTHRITIS
  4. LYRICA [Concomitant]
     Active Substance: PREGABALIN
  5. PREMARIN [Concomitant]
     Active Substance: ESTROGENS, CONJUGATED
  6. SYNTHROID [Concomitant]
     Active Substance: LEVOTHYROXINE SODIUM
  7. CRUSH VITAMIN C LOZENGES [Concomitant]
  8. AZATHIOPRINE. [Concomitant]
     Active Substance: AZATHIOPRINE
  9. MYCOPHENOLATE [Concomitant]
     Active Substance: MYCOPHENOLIC ACID
  10. OMEPRAZOLE. [Concomitant]
     Active Substance: OMEPRAZOLE

REACTIONS (1)
  - Shoulder operation [None]
